FAERS Safety Report 17035823 (Version 2)
Quarter: 2020Q1

REPORT INFORMATION
  Report Type: Spontaneous
  Country: US (occurrence: US)
  Receive Date: 20191115
  Receipt Date: 20200124
  Transmission Date: 20200409
  Serious: No
  Sender: FDA-Public Use
  Company Number: US-SUNOVION-2019SUN004778

PATIENT
  Sex: Male

DRUGS (1)
  1. LONHALA MAGNAIR [Suspect]
     Active Substance: GLYCOPYRROLATE
     Dosage: 25 ?G, BID (60/30)
     Route: 055

REACTIONS (6)
  - Condition aggravated [Unknown]
  - Cough [Unknown]
  - Therapy cessation [Unknown]
  - Therapeutic product effect increased [Unknown]
  - Dyspnoea [Unknown]
  - Wrong technique in device usage process [Unknown]
